FAERS Safety Report 12850700 (Version 4)
Quarter: 2018Q4

REPORT INFORMATION
  Report Type: Spontaneous
  Country: DK (occurrence: DK)
  Receive Date: 20161014
  Receipt Date: 20181221
  Transmission Date: 20190204
  Serious: Yes (Hospitalization, Other)
  Sender: FDA-Public Use
  Company Number: DK-PFIZER INC-2016475895

PATIENT
  Age: 34 Year
  Sex: Male

DRUGS (1)
  1. FENTANYL. [Suspect]
     Active Substance: FENTANYL
     Indication: ANALGESIC THERAPY
     Dosage: 2 X 75 ?G/H
     Route: 048

REACTIONS (5)
  - Incorrect route of product administration [Unknown]
  - Loss of consciousness [Unknown]
  - Drug abuse [Unknown]
  - Seizure [Unknown]
  - Respiratory failure [Unknown]
